FAERS Safety Report 8847600 (Version 1)
Quarter: 2012Q4

REPORT INFORMATION
  Report Type: 
  Country: CA (occurrence: CA)
  Receive Date: 20121018
  Receipt Date: 20121018
  Transmission Date: 20130627
  Serious: Yes (Hospitalization, Disabling, Other)
  Sender: FDA-Public Use
  Company Number: CA-ELI_LILLY_AND_COMPANY-CA201210001841

PATIENT
  Age: 36 Year
  Sex: Female
  Weight: 129 kg

DRUGS (9)
  1. CYMBALTA [Suspect]
     Dosage: 60 mg, qd
     Route: 048
  2. CYMBALTA [Suspect]
     Dosage: 30 mg, qd
     Route: 048
  3. ATIVAN [Concomitant]
  4. CARBAMAZEPINE [Concomitant]
  5. FENTANYL [Concomitant]
     Route: 062
  6. KEPPRA [Concomitant]
  7. OXAZEPAM [Concomitant]
  8. SYNTHROID [Concomitant]
  9. TRAZODONE [Concomitant]

REACTIONS (17)
  - Abnormal dreams [Recovered/Resolved]
  - Blood pressure increased [Recovered/Resolved]
  - Dry throat [Recovered/Resolved]
  - Dysphagia [Recovered/Resolved]
  - Ear pain [Recovered/Resolved]
  - Hyperhidrosis [Recovered/Resolved]
  - Insomnia [Recovered/Resolved]
  - Memory impairment [Recovered/Resolved]
  - Nervous system disorder [Recovered/Resolved]
  - Nightmare [Recovered/Resolved]
  - Palpitations [Recovered/Resolved]
  - Personality change [Recovered/Resolved]
  - Sinus disorder [Recovered/Resolved]
  - Sinus headache [Recovered/Resolved]
  - Temperature difference of extremities [Recovered/Resolved]
  - Tinnitus [Recovered/Resolved]
  - Vision blurred [Recovered/Resolved]
